FAERS Safety Report 7882335-3 (Version None)
Quarter: 2011Q4

REPORT INFORMATION
  Report Type: 
  Country: None (occurrence: None)
  Receive Date: 20111101
  Receipt Date: 20110613
  Transmission Date: 20120403
  Serious: No
  Sender: FDA-Public Use
  Company Number: US-AMGEN-USASP2011030275

PATIENT
  Age: 50 Year
  Sex: Female
  Weight: 72.562 kg

DRUGS (6)
  1. THYROID TAB [Concomitant]
     Dosage: 32.5 MG, UNK
     Route: 048
  2. ENBREL [Suspect]
     Indication: RHEUMATOID ARTHRITIS
     Dosage: 50 MG, QWK
     Route: 058
     Dates: start: 20101129
  3. RESTASIS [Concomitant]
     Dosage: UNK
     Route: 047
  4. PREMARIN [Concomitant]
     Dosage: 0.625 MG, UNK
     Route: 067
  5. OTHER MINERAL SUPPLEMENTS [Concomitant]
     Dosage: UNK
  6. SULFASALAZINE [Concomitant]
     Dosage: UNK

REACTIONS (7)
  - RASH [None]
  - BACK PAIN [None]
  - NECK PAIN [None]
  - THERAPEUTIC RESPONSE DECREASED [None]
  - INFLAMMATION [None]
  - URTICARIA [None]
  - ARTHRITIS [None]
